FAERS Safety Report 7626812-9 (Version None)
Quarter: 2011Q3

REPORT INFORMATION
  Report Type: 
  Country: None (occurrence: None)
  Receive Date: 20110721
  Receipt Date: 20110222
  Transmission Date: 20111222
  Serious: No
  Sender: FDA-Public Use
  Company Number: US-BAYER-2011-051556

PATIENT
  Age: 71 Year
  Sex: Male
  Weight: 99.773 kg

DRUGS (1)
  1. ALEVE (CAPLET) [Suspect]
     Indication: ANALGESIC THERAPY
     Dosage: 1 DF, BID, BOTTLE COUNT 100CT
     Route: 048

REACTIONS (1)
  - INITIAL INSOMNIA [None]
